FAERS Safety Report 7814817-4 (Version None)
Quarter: 2011Q4

REPORT INFORMATION
  Report Type: 
  Country: None (occurrence: None)
  Receive Date: 20111014
  Receipt Date: 20111004
  Transmission Date: 20120403
  Serious: Yes (Hospitalization)
  Sender: FDA-Public Use
  Company Number: CA-ROCHE-1004288

PATIENT
  Sex: Female

DRUGS (5)
  1. XOLAIR [Suspect]
     Indication: ASTHMA
     Route: 058
     Dates: start: 20110125
  2. ANTIBIOTICS NOS [Concomitant]
  3. PREDNISOLONE [Concomitant]
  4. CORTISONE ACETATE [Concomitant]
  5. PULMICORT [Concomitant]

REACTIONS (1)
  - PNEUMONIA [None]
